FAERS Safety Report 8599155-7 (Version None)
Quarter: 2012Q3

REPORT INFORMATION
  Report Type: 
  Country: None (occurrence: None)
  Receive Date: 20120816
  Receipt Date: 20120806
  Transmission Date: 20120928
  Serious: No
  Sender: FDA-Public Use
  Company Number: US-ASTRAZENECA-2012SE55668

PATIENT
  Sex: Female

DRUGS (3)
  1. TOPROL-XL [Suspect]
     Indication: POSTURAL ORTHOSTATIC TACHYCARDIA SYNDROME
     Route: 048
     Dates: start: 20020101, end: 20090101
  2. TOPROL-XL [Suspect]
     Route: 048
  3. TOPROL-XL [Suspect]
     Route: 048
     Dates: start: 20090101

REACTIONS (3)
  - HEART RATE INCREASED [None]
  - OFF LABEL USE [None]
  - ANXIETY [None]
